FAERS Safety Report 6641318-1 (Version None)
Quarter: 2010Q1

REPORT INFORMATION
  Report Type: 
  Country: None (occurrence: None)
  Receive Date: 20100318
  Receipt Date: 20100310
  Transmission Date: 20100710
  Serious: Yes (Life-Threatening)
  Sender: FDA-Public Use
  Company Number: A0850477A

PATIENT
  Age: 69 Year
  Sex: Male

DRUGS (5)
  1. TOSITUMOMAB [Suspect]
     Indication: NON-HODGKIN'S LYMPHOMA
     Dosage: 450MG SINGLE DOSE
     Route: 042
     Dates: start: 20000119, end: 20000119
  2. TOSITUMOMAB [Suspect]
     Dosage: 5MCI SINGLE DOSE
     Route: 042
     Dates: start: 20000119, end: 20000119
  3. TOSITUMOMAB [Suspect]
     Dosage: 450MG SINGLE DOSE
     Route: 042
     Dates: start: 20000126, end: 20000126
  4. TOSITUMOMAB [Suspect]
     Dosage: 92MCI SINGLE DOSE
     Route: 042
     Dates: start: 20000126, end: 20000126
  5. DECITABINE [Concomitant]
     Indication: NON-HODGKIN'S LYMPHOMA
     Dates: start: 20081117

REACTIONS (1)
  - MYELODYSPLASTIC SYNDROME [None]
